FAERS Safety Report 6932998-1 (Version None)
Quarter: 2010Q3

REPORT INFORMATION
  Report Type: 
  Country: None (occurrence: None)
  Receive Date: 20100818
  Receipt Date: 20100818
  Transmission Date: 20110219
  Serious: Yes (Life-Threatening)
  Sender: FDA-Public Use
  Company Number: None

PATIENT
  Sex: Female
  Weight: 83.9154 kg

DRUGS (1)
  1. ABILIFY [Suspect]
     Indication: DEPRESSION
     Dosage: 15 MG 1 AT NIGHT
     Dates: start: 20100723, end: 20100730

REACTIONS (8)
  - FALL [None]
  - HEART RATE ABNORMAL [None]
  - INSOMNIA [None]
  - LOSS OF CONSCIOUSNESS [None]
  - RESPIRATORY ARREST [None]
  - SKIN DISCOLOURATION [None]
  - SWOLLEN TONGUE [None]
  - VISION BLURRED [None]
